FAERS Safety Report 12751500 (Version 1)
Quarter: 2016Q3

REPORT INFORMATION
  Report Type: Spontaneous
  Country: US (occurrence: US)
  Receive Date: 20160916
  Receipt Date: 20160916
  Transmission Date: 20161109
  Serious: Yes (Disabling)
  Sender: FDA-Public Use
  Company Number: None

PATIENT
  Age: 89 Year
  Sex: Male
  Weight: 63 kg

DRUGS (1)
  1. CIPROFLOXICIN [Suspect]
     Active Substance: CIPROFLOXACIN
     Indication: URINARY TRACT INFECTION
     Route: 048
     Dates: start: 20160804, end: 20160818

REACTIONS (6)
  - Nausea [None]
  - Vomiting [None]
  - Pain in extremity [None]
  - Muscular weakness [None]
  - Walking aid user [None]
  - Gait disturbance [None]

NARRATIVE: CASE EVENT DATE: 20160820
